FAERS Safety Report 14790050 (Version 3)
Quarter: 2018Q2

REPORT INFORMATION
  Report Type: Report from Study
  Country: GB (occurrence: GB)
  Receive Date: 20180423
  Receipt Date: 20180622
  Transmission Date: 20180711
  Serious: Yes (Other)
  Sender: FDA-Public Use
  Company Number: PHHY2018GB066906

PATIENT
  Age: 44 Year

DRUGS (1)
  1. ENTRESTO [Suspect]
     Active Substance: SACUBITRIL\VALSARTAN
     Indication: CARDIAC FAILURE CHRONIC
     Dosage: 50 MG (24 MG SACUBITRIL AND 26 MG VALSARTAN), BID
     Route: 048
     Dates: start: 20160725

REACTIONS (5)
  - Neoplasm malignant [Unknown]
  - Hand fracture [Recovered/Resolved]
  - Eye opacity [Unknown]
  - Vitreous haemorrhage [Recovered/Resolved]
  - Fibrosis [Recovered/Resolved]

NARRATIVE: CASE EVENT DATE: 20170705
